FAERS Safety Report 7177487-7 (Version None)
Quarter: 2010Q4

REPORT INFORMATION
  Report Type: 
  Country: None (occurrence: None)
  Receive Date: 20101123
  Receipt Date: 20101006
  Transmission Date: 20110411
  Serious: No
  Sender: FDA-Public Use
  Company Number: 019957

PATIENT
  Sex: Female

DRUGS (6)
  1. CIMZIA [Suspect]
     Indication: CROHN'S DISEASE
     Dosage: (400 MG 1X/2 WEEKS SUBCUTANEOUS)
     Route: 058
     Dates: start: 20100914
  2. CYMBALTA [Concomitant]
  3. ORTHO TRI-CYCLEN [Concomitant]
  4. CHLORTHALIDONE [Concomitant]
  5. LEVOXYL [Concomitant]
  6. OSCAL /00108001/ [Concomitant]

REACTIONS (6)
  - ASTHMA [None]
  - CHILLS [None]
  - FEELING HOT [None]
  - PYREXIA [None]
  - SENSATION OF HEAVINESS [None]
  - SINUSITIS [None]
